FAERS Safety Report 6550519-2 (Version None)
Quarter: 2010Q1

REPORT INFORMATION
  Report Type: 
  Country: None (occurrence: None)
  Receive Date: 20100125
  Receipt Date: 20100119
  Transmission Date: 20100710
  Serious: Yes (Other)
  Sender: FDA-Public Use
  Company Number: B0624337A

PATIENT
  Age: 54 Year
  Sex: Male
  Weight: 70 kg

DRUGS (1)
  1. AVODART [Suspect]
     Dosage: .5MG TWICE PER DAY
     Route: 048
     Dates: start: 20091221, end: 20091229

REACTIONS (5)
  - DIABETES MELLITUS [None]
  - DRUG DISPENSING ERROR [None]
  - HYPERGLYCAEMIA [None]
  - MEDICATION ERROR [None]
  - WRONG DRUG ADMINISTERED [None]
